FAERS Safety Report 5389176-X (Version None)
Quarter: 2007Q3

REPORT INFORMATION
  Report Type: 
  Country: None (occurrence: None)
  Receive Date: 20070717
  Receipt Date: 20070711
  Transmission Date: 20080115
  Serious: Yes (Other)
  Sender: FDA-Public Use
  Company Number: JP-AVENTIS-200711883JP

PATIENT
  Age: 73 Year
  Sex: Male

DRUGS (1)
  1. DOCETAXEL [Suspect]
     Indication: GASTRIC CANCER
     Route: 033

REACTIONS (1)
  - AUTOIMMUNE THROMBOCYTOPENIA [None]
